FAERS Safety Report 5159754-1 (Version None)
Quarter: 2006Q4

REPORT INFORMATION
  Report Type: 
  Country: None (occurrence: None)
  Receive Date: 20061129
  Receipt Date: 20051107
  Transmission Date: 20070319
  Serious: No
  Sender: FDA-Public Use
  Company Number: US-GLAXOSMITHKLINE-A0581197A

PATIENT
  Age: 39 Year
  Sex: Female

DRUGS (1)
  1. WELLBUTRIN SR [Suspect]
     Indication: PANIC ATTACK
     Dosage: 150MG TWICE PER DAY
     Route: 048

REACTIONS (4)
  - FEELING JITTERY [None]
  - NERVOUSNESS [None]
  - PANIC ATTACK [None]
  - THROAT TIGHTNESS [None]
